FAERS Safety Report 6912909-5 (Version None)
Quarter: 2010Q3

REPORT INFORMATION
  Report Type: 
  Country: None (occurrence: None)
  Receive Date: 20100806
  Receipt Date: 20090320
  Transmission Date: 20110219
  Serious: No
  Sender: FDA-Public Use
  Company Number: US-PFIZER INC-2008154688

PATIENT
  Sex: Male
  Weight: 81.6 kg

DRUGS (3)
  1. DILANTIN [Suspect]
     Indication: CONVULSION
     Dosage: UNK
     Dates: start: 19460101
  2. TRIDIONE [Concomitant]
     Dosage: UNK
  3. CELEBREX [Concomitant]
     Dosage: UNK

REACTIONS (8)
  - AGGRESSION [None]
  - COLD SWEAT [None]
  - DYSPEPSIA [None]
  - FEELING COLD [None]
  - FEELING HOT [None]
  - LETHARGY [None]
  - MOOD SWINGS [None]
  - PALPITATIONS [None]
